FAERS Safety Report 10150468 (Version 3)
Quarter: 2017Q3

REPORT INFORMATION
  Report Type: Spontaneous
  Country: US (occurrence: US)
  Receive Date: 20140502
  Receipt Date: 20170710
  Transmission Date: 20171127
  Serious: No
  Sender: FDA-Public Use
  Company Number: US-009507513-1405USA000447

PATIENT
  Age: 38 Year
  Sex: Female
  Weight: 58.05 kg

DRUGS (4)
  1. NEXPLANON [Suspect]
     Active Substance: ETONOGESTREL
     Indication: CONTRACEPTION
     Dosage: SINGLE ROD
     Route: 059
     Dates: start: 201312
  2. CLONIDINE. [Concomitant]
     Active Substance: CLONIDINE
  3. NEXPLANON [Suspect]
     Active Substance: ETONOGESTREL
     Dosage: ONE IMPALNT IN LEFT ARM, FOR 3 YEARS
     Route: 059
     Dates: start: 201608, end: 201610
  4. ZONEGRAN [Concomitant]
     Active Substance: ZONISAMIDE

REACTIONS (8)
  - Ocular discomfort [Recovered/Resolved]
  - Dyspnoea [Recovered/Resolved]
  - Eye pain [Recovered/Resolved]
  - Paraesthesia [Unknown]
  - Abdominal pain upper [Unknown]
  - Menstruation normal [Unknown]
  - Hypoaesthesia [Unknown]
  - Headache [Unknown]

NARRATIVE: CASE EVENT DATE: 201402
